FAERS Safety Report 6297461-2 (Version None)
Quarter: 2009Q3

REPORT INFORMATION
  Report Type: 
  Country: None (occurrence: None)
  Receive Date: 20090805
  Receipt Date: 20090729
  Transmission Date: 20100115
  Serious: Yes (Death, Other)
  Sender: FDA-Public Use
  Company Number: JP-BAYER-200911767BYL

PATIENT
  Age: 83 Year
  Sex: Male
  Weight: 50 kg

DRUGS (10)
  1. NEXAVAR [Suspect]
     Indication: RENAL CELL CARCINOMA STAGE IV
     Dosage: TOTAL DAILY DOSE: 800 MG  UNIT DOSE: 200 MG
     Route: 048
     Dates: start: 20090509, end: 20090511
  2. NEXAVAR [Suspect]
     Dosage: UNIT DOSE: 200 MG
     Route: 048
     Dates: start: 20090512, end: 20090528
  3. AMARYL [Concomitant]
     Route: 048
     Dates: start: 20090509, end: 20090528
  4. HARNAL D [Concomitant]
     Route: 048
     Dates: start: 20090509, end: 20090528
  5. OMEPRAL [Concomitant]
     Route: 048
     Dates: start: 20090509, end: 20090528
  6. LOXONIN [Concomitant]
     Route: 048
     Dates: start: 20090509, end: 20090528
  7. CYANOCOBALAMIN [Concomitant]
     Route: 048
     Dates: start: 20090509, end: 20090528
  8. DOGMATYL [Concomitant]
     Route: 048
     Dates: start: 20090509, end: 20090528
  9. ALLEGRA [Concomitant]
     Route: 048
     Dates: start: 20090509, end: 20090528
  10. PREDONINE [Concomitant]
     Route: 048
     Dates: start: 20090528, end: 20090713

REACTIONS (4)
  - HYPERTENSION [None]
  - INTERSTITIAL LUNG DISEASE [None]
  - PALMAR-PLANTAR ERYTHRODYSAESTHESIA SYNDROME [None]
  - RENAL CELL CARCINOMA [None]
